FAERS Safety Report 6688335-3 (Version None)
Quarter: 2010Q2

REPORT INFORMATION
  Report Type: 
  Country: None (occurrence: None)
  Receive Date: 20100420
  Receipt Date: 20100408
  Transmission Date: 20101027
  Serious: Yes (Other)
  Sender: FDA-Public Use
  Company Number: PHHY2010FR22820

PATIENT
  Sex: Female

DRUGS (3)
  1. NEORAL [Suspect]
     Indication: PROPHYLAXIS AGAINST TRANSPLANT REJECTION
     Dosage: 130 MG DAILY
     Dates: start: 20071231
  2. IMUREL [Concomitant]
     Dosage: 75 MG
     Dates: start: 20091102
  3. SOLUPRED [Concomitant]
     Dosage: 15 MG
     Dates: start: 20071231

REACTIONS (2)
  - ABORTION SPONTANEOUS [None]
  - DRUG EXPOSURE DURING PREGNANCY [None]
